FAERS Safety Report 20444589 (Version 1)
Quarter: 2022Q1

REPORT INFORMATION
  Report Type: Spontaneous
  Country: SE (occurrence: SE)
  Receive Date: 20220208
  Receipt Date: 20220208
  Transmission Date: 20220423
  Serious: Yes (Other)
  Sender: FDA-Public Use
  Company Number: None

PATIENT
  Age: 68 Year
  Sex: Female
  Weight: 54 kg

DRUGS (3)
  1. IRINOTECAN [Suspect]
     Active Substance: IRINOTECAN
     Indication: Bile duct cancer
     Route: 042
     Dates: start: 20201103, end: 20210603
  2. FLUOROURACIL [Suspect]
     Active Substance: FLUOROURACIL
     Indication: Bile duct cancer
     Route: 042
     Dates: start: 20201103, end: 20210603
  3. COMIRNATY [Suspect]
     Active Substance: TOZINAMERAN
     Dosage: DOS 2
     Dates: start: 20210621

REACTIONS (6)
  - Disorientation [Not Recovered/Not Resolved]
  - Cognitive disorder [Not Recovered/Not Resolved]
  - Somnolence [Not Recovered/Not Resolved]
  - Confusional state [Not Recovered/Not Resolved]
  - Memory impairment [Not Recovered/Not Resolved]
  - Fatigue [Not Recovered/Not Resolved]

NARRATIVE: CASE EVENT DATE: 20210622
